FAERS Safety Report 7937689-6 (Version None)
Quarter: 2011Q4

REPORT INFORMATION
  Report Type: 
  Country: None (occurrence: None)
  Receive Date: 20111123
  Receipt Date: 20111111
  Transmission Date: 20120403
  Serious: Yes (Other)
  Sender: FDA-Public Use
  Company Number: PHHY2011MX100077

PATIENT
  Age: 74 Year
  Sex: Male

DRUGS (5)
  1. ENALAPRIL MALEATE [Concomitant]
     Dosage: UNK UKN, UNK
  2. CHLORTHALIDONE [Concomitant]
     Dosage: UNK UKN, UNK
  3. METOPROLOL TARTRATE [Concomitant]
     Dosage: UNK UKN, UNK
  4. NAFTIFINE [Concomitant]
     Dosage: UNK UKN, UNK
  5. DIOVAN [Suspect]
     Indication: HYPERTENSION
     Dosage: 1 TABLET (80 MG) PER DAY
     Dates: start: 20110901, end: 20110901

REACTIONS (3)
  - ORAL DISORDER [None]
  - MUSCULOSKELETAL STIFFNESS [None]
  - HYPERTENSION [None]
